FAERS Safety Report 8481984-1 (Version None)
Quarter: 2012Q3

REPORT INFORMATION
  Report Type: 
  Country: None (occurrence: None)
  Receive Date: 20120702
  Receipt Date: 20120625
  Transmission Date: 20120928
  Serious: Yes (Other)
  Sender: FDA-Public Use
  Company Number: PHEH2012US007647

PATIENT
  Sex: Male
  Weight: 80 kg

DRUGS (9)
  1. ZOLOFT [Concomitant]
     Indication: DEPRESSION
     Dosage: 100 MG, DAILY
     Route: 048
     Dates: start: 20120120
  2. FANAPT [Suspect]
     Dosage: 24 MG, DAILY
     Dates: start: 20120329
  3. FANAPT [Suspect]
     Dosage: 18 MG, DAILY
     Dates: start: 20120323
  4. DEPAKENE [Concomitant]
     Indication: AFFECTIVE DISORDER
     Dosage: 500 MG, QD
     Route: 048
     Dates: start: 20120325
  5. FANAPT [Suspect]
     Dosage: 6 MG, BID
  6. FANAPT [Suspect]
     Dosage: 18 MG, DAILY
  7. FANAPT [Suspect]
     Indication: SCHIZOPHRENIA
     Dosage: 1 MG, BID
     Route: 048
     Dates: start: 20120313
  8. FANAPT [Suspect]
     Dosage: 2 MG, BID
     Route: 048
  9. FANAPT [Suspect]
     Dosage: 4 MG, BID

REACTIONS (7)
  - URINARY INCONTINENCE [None]
  - PSYCHOTIC DISORDER [None]
  - SOMNOLENCE [None]
  - ENURESIS [None]
  - ANXIETY [None]
  - DYSPNOEA [None]
  - SNORING [None]
